FAERS Safety Report 4631098-3 (Version None)
Quarter: 2005Q2

REPORT INFORMATION
  Report Type: 
  Country: None (occurrence: None)
  Receive Date: 20050406
  Receipt Date: 20050328
  Transmission Date: 20051028
  Serious: Yes (Hospitalization, Other)
  Sender: FDA-Public Use
  Company Number: 2005050445

PATIENT
  Age: 80 Year
  Sex: Male
  Weight: 81.6475 kg

DRUGS (10)
  1. NORVASC [Suspect]
     Indication: HYPERTENSION
     Dosage: 5 MG (5 MG, 1 IN 1 D), ORAL
     Route: 048
  2. SERTRALINE HCL [Concomitant]
  3. RAMIPIRIL (RAMIPRIL) [Concomitant]
  4. ASPIRIN [Concomitant]
  5. METOPROLOL SUCCINATE [Concomitant]
  6. TAMSULOSIN HYDROCHLORIDE (TAMSULOSIN HYDROCHLORIDE) [Concomitant]
  7. FUROSEMIDE [Concomitant]
  8. PRAVASTATIN SODIUM [Concomitant]
  9. NICOTINIC ACID [Concomitant]
  10. TRIOBE (CYANOCOBALAMIN, FOLIC ACID, PYRIDOXINE) [Concomitant]

REACTIONS (7)
  - ARTERIAL THERAPEUTIC PROCEDURE [None]
  - DRUG INTERACTION [None]
  - ECZEMA ASTEATOTIC [None]
  - INSOMNIA [None]
  - QUADRUPLE VESSEL BYPASS GRAFT [None]
  - RASH [None]
  - SCRATCH [None]
